FAERS Safety Report 9883593 (Version 1)
Quarter: 2014Q1

REPORT INFORMATION
  Report Type: Other
  Country: JP (occurrence: JP)
  Receive Date: 20140210
  Receipt Date: 20140210
  Transmission Date: 20141002
  Serious: Yes (Other)
  Sender: FDA-Public Use
  Company Number: JP-BRISTOL-MYERS SQUIBB COMPANY-20161378

PATIENT
  Age: 26 Year
  Sex: Female

DRUGS (6)
  1. ABILIFY TABS [Suspect]
     Indication: SCHIZOPHRENIA
  2. QUETIAPINE FUMARATE [Suspect]
  3. SODIUM VALPROATE [Suspect]
  4. LEVOMEPROMAZINE [Suspect]
  5. LORAZEPAM [Suspect]
  6. MIDODRINE HCL [Suspect]

REACTIONS (3)
  - Rhabdomyolysis [Recovered/Resolved]
  - Pulmonary embolism [Unknown]
  - Overdose [Unknown]
